FAERS Safety Report 7346157-4 (Version None)
Quarter: 2011Q1

REPORT INFORMATION
  Report Type: 
  Country: None (occurrence: None)
  Receive Date: 20110311
  Receipt Date: 20110228
  Transmission Date: 20110831
  Serious: Yes (Hospitalization, Disabling, Other)
  Sender: FDA-Public Use
  Company Number: PHHY2010CA71922

PATIENT
  Sex: Female

DRUGS (17)
  1. AMITRIPTYLINE [Concomitant]
     Dosage: 10 MG AT BED TIME
  2. BETAMETHASONE [Concomitant]
  3. MOMETASONE FUROATE [Concomitant]
  4. DOCUSATE SODIUM [Concomitant]
  5. OMEPRAZOLE [Concomitant]
  6. METOPROLOL [Concomitant]
  7. TOLTERODINE TARTRATE [Concomitant]
  8. CALCIUM [Concomitant]
  9. CYANOCOBALAMIN [Concomitant]
  10. BISACODYL [Concomitant]
  11. LACTULOSE [Concomitant]
  12. ACLASTA [Suspect]
     Dosage: UNK
     Dates: start: 20110101
  13. FERROUS GLUCONATE [Concomitant]
  14. ACLASTA [Suspect]
     Indication: OSTEOPOROSIS
     Dates: start: 20081201
  15. ACETYLSALICYLIC ACID [Concomitant]
     Dosage: 325 MG
     Route: 048
  16. COLECALCIFEROL [Concomitant]
  17. ACLASTA [Suspect]
     Dosage: 5 MG
     Route: 042
     Dates: start: 20091210

REACTIONS (5)
  - FALL [None]
  - INJURY [None]
  - AORTIC CALCIFICATION [None]
  - SPINAL COMPRESSION FRACTURE [None]
  - SCOLIOSIS [None]
